FAERS Safety Report 17771380 (Version 1)
Quarter: 2020Q2

REPORT INFORMATION
  Report Type: Spontaneous
  Country: US (occurrence: US)
  Receive Date: 20200512
  Receipt Date: 20200512
  Transmission Date: 20200714
  Serious: Yes (Death)
  Sender: FDA-Public Use
  Company Number: US-WEST THERAPEUTIC DEVELOPMENT-2020WTD00014

PATIENT
  Age: 29 Year
  Sex: Female

DRUGS (1)
  1. SUBSYS [Suspect]
     Active Substance: FENTANYL

REACTIONS (1)
  - Death [Fatal]

NARRATIVE: CASE EVENT DATE: 20180717
